FAERS Safety Report 22218348 (Version 2)
Quarter: 2023Q2

REPORT INFORMATION
  Report Type: Spontaneous
  Country: UA (occurrence: UA)
  Receive Date: 20230417
  Receipt Date: 20230424
  Transmission Date: 20230722
  Serious: Yes (Life-Threatening, Other)
  Sender: FDA-Public Use
  Company Number: UA-PFIZER INC-PV202300066169

PATIENT
  Age: 22 Month
  Sex: Male

DRUGS (10)
  1. METHYLPREDNISOLONE [Suspect]
     Active Substance: METHYLPREDNISOLONE
     Indication: Graft versus host disease
     Dosage: UNK
  2. BUDESONIDE [Concomitant]
     Active Substance: BUDESONIDE
     Indication: Graft versus host disease
     Dosage: UNK
     Route: 048
  3. TREOSULFAN [Concomitant]
     Active Substance: TREOSULFAN
     Indication: Graft versus host disease
     Dosage: UNK, ON DAYS -8, -7, -6, -5, -4.
  4. FLUDARABINE [Concomitant]
     Active Substance: FLUDARABINE PHOSPHATE
     Indication: Graft versus host disease
     Dosage: UNK, ON DAYS -8, -7, -6, -5, -4.
  5. THIOTEPA [Concomitant]
     Active Substance: THIOTEPA
     Indication: Graft versus host disease
     Dosage: UNK, ON DAYS -8, -7, -6, -5, -4
  6. THYMOCYTE IMMUNE GLOBULIN NOS [Concomitant]
     Active Substance: THYMOCYTE IMMUNE GLOBULIN NOS
     Indication: Graft versus host disease
     Dosage: 5 MG/KG, ON DAYS -8, -7, -6, -5, -4
  7. RITUXIMAB [Concomitant]
     Active Substance: RITUXIMAB
     Indication: Graft versus host disease
     Dosage: 100 MG/M2, ON DAYS -8, -7, -6, -5, -4
  8. GRANULOCYTE COLONY-STIMULATING FACTOR NOS [Concomitant]
     Active Substance: GRANULOCYTE COLONY-STIMULATING FACTOR NOS
     Indication: Graft versus host disease
     Dosage: 10 UG/KG, DAILY, ON DAYS -8, -7, -6, -5, -4
  9. CYCLOSPORINE [Concomitant]
     Active Substance: CYCLOSPORINE
     Indication: Graft versus host disease
     Dosage: 3 MG/KG, DAILY (1.5 MG/KG 2-HOUR INFUSION 2 G/DAY), FROM DAY -1
  10. METHOTREXATE [Concomitant]
     Active Substance: METHOTREXATE
     Indication: Graft versus host disease
     Dosage: 10 MG/M2, ON DAYS +1,+3 AND +6.
     Route: 042

REACTIONS (2)
  - Obesity [Not Recovered/Not Resolved]
  - Off label use [Unknown]
